FAERS Safety Report 6972753-X (Version None)
Quarter: 2010Q3

REPORT INFORMATION
  Report Type: 
  Country: None (occurrence: None)
  Receive Date: 20100909
  Receipt Date: 20100908
  Transmission Date: 20110219
  Serious: Yes (Death, Hospitalization)
  Sender: FDA-Public Use
  Company Number: US-GENZYME-CLOF-1001113

PATIENT
  Sex: Male

DRUGS (4)
  1. CLOFARABINE [Suspect]
     Indication: ACUTE MYELOID LEUKAEMIA
     Dates: start: 20090429, end: 20090503
  2. CLOFARABINE [Suspect]
     Dates: start: 20090612, end: 20090615
  3. ARA-C [Suspect]
     Indication: ACUTE MYELOID LEUKAEMIA
     Dosage: 2350 MG, UNK
     Route: 042
     Dates: start: 20090430, end: 20090503
  4. ARA-C [Suspect]
     Dosage: 2350 MG, QD
     Route: 042
     Dates: start: 20090613, end: 20090616

REACTIONS (5)
  - BACTERAEMIA [None]
  - CARDIAC ARREST [None]
  - HYPOTENSION [None]
  - PYREXIA [None]
  - RHABDOMYOLYSIS [None]
